FAERS Safety Report 25030879 (Version 1)
Quarter: 2025Q1

REPORT INFORMATION
  Report Type: Spontaneous
  Country: US (occurrence: US)
  Receive Date: 20250303
  Receipt Date: 20250303
  Transmission Date: 20250409
  Serious: No
  Sender: AMGEN
  Company Number: US-AMGEN-USASP2025038682

PATIENT
  Sex: Female

DRUGS (1)
  1. REPATHA [Suspect]
     Active Substance: EVOLOCUMAB
     Indication: Product used for unknown indication
     Dosage: 140 MILLIGRAM, Q2WK, (ROUTE OF ADMINISTRATION: ARM)
     Route: 065

REACTIONS (4)
  - Injection site haemorrhage [Unknown]
  - Product administration error [Unknown]
  - Wrong technique in product usage process [Unknown]
  - Injury associated with device [Unknown]
